FAERS Safety Report 16028225 (Version 4)
Quarter: 2020Q1

REPORT INFORMATION
  Report Type: Spontaneous
  Country: US (occurrence: US)
  Receive Date: 20190304
  Receipt Date: 20200306
  Transmission Date: 20200409
  Serious: Yes (Death, Other)
  Sender: FDA-Public Use
  Company Number: US-ASTRAZENECA-2019SE11030

PATIENT
  Age: 23614 Day
  Sex: Male

DRUGS (34)
  1. GAVISCON [Concomitant]
     Active Substance: ALUMINUM HYDROXIDE\MAGNESIUM CARBONATE
  2. PRILOSEC [Suspect]
     Active Substance: OMEPRAZOLE MAGNESIUM
     Indication: ABDOMINAL DISCOMFORT
     Route: 048
  3. PRILOSEC OTC [Suspect]
     Active Substance: OMEPRAZOLE MAGNESIUM
     Route: 048
  4. DEXILANT [Suspect]
     Active Substance: DEXLANSOPRAZOLE
     Route: 065
  5. PREVACID [Suspect]
     Active Substance: LANSOPRAZOLE
     Indication: ABDOMINAL DISCOMFORT
     Dosage: 30 MG
     Route: 065
     Dates: start: 1995
  6. ALLOPURINOL. [Concomitant]
     Active Substance: ALLOPURINOL
  7. FOSTENOL [Concomitant]
     Indication: NEPHROPATHY
     Dates: start: 2015
  8. IBUPROFEN. [Concomitant]
     Active Substance: IBUPROFEN
     Indication: PAIN
     Dates: start: 1995
  9. BENADRYL [Concomitant]
     Active Substance: DIPHENHYDRAMINE HYDROCHLORIDE
     Indication: MULTIPLE ALLERGIES
     Dates: start: 2000
  10. SYMBICORT [Concomitant]
     Active Substance: BUDESONIDE\FORMOTEROL FUMARATE DIHYDRATE
     Indication: CHRONIC OBSTRUCTIVE PULMONARY DISEASE
  11. ASPIRIN. [Concomitant]
     Active Substance: ASPIRIN
     Indication: ANTICOAGULANT THERAPY
     Dates: start: 2000
  12. TUMS [Concomitant]
     Active Substance: CALCIUM CARBONATE
  13. PREVACID [Suspect]
     Active Substance: LANSOPRAZOLE
     Indication: ABDOMINAL DISCOMFORT
     Route: 065
  14. HYDROCODONE [Concomitant]
     Active Substance: HYDROCODONE
     Indication: PAIN
     Dates: start: 2013
  15. CITALOPRAM HYDROBROMIDE. [Concomitant]
     Active Substance: CITALOPRAM HYDROBROMIDE
  16. ALKA-SELTZER [Concomitant]
     Active Substance: ANHYDROUS CITRIC ACID\ASPIRIN\SODIUM BICARBONATE
  17. DICLOFENAC [Concomitant]
     Active Substance: DICLOFENAC
  18. NEXIUM [Suspect]
     Active Substance: ESOMEPRAZOLE MAGNESIUM
     Indication: ABDOMINAL DISCOMFORT
     Route: 048
     Dates: start: 20000101
  19. PRILOSEC [Suspect]
     Active Substance: OMEPRAZOLE MAGNESIUM
     Indication: ABDOMINAL DISCOMFORT
     Dosage: GENERIC, 20 MG
     Route: 065
     Dates: start: 1988
  20. AMLODIPINE BESYLATE. [Concomitant]
     Active Substance: AMLODIPINE BESYLATE
  21. LISINOPRIL. [Concomitant]
     Active Substance: LISINOPRIL
     Indication: BLOOD PRESSURE ABNORMAL
     Dates: start: 1993
  22. TAGAMET [Concomitant]
     Active Substance: CIMETIDINE
  23. NEXIUM [Suspect]
     Active Substance: ESOMEPRAZOLE MAGNESIUM
     Indication: ABDOMINAL DISCOMFORT
     Dosage: 20 MG
     Route: 048
     Dates: start: 1990
  24. NEXIUM 24HR [Suspect]
     Active Substance: ESOMEPRAZOLE MAGNESIUM
     Route: 048
  25. ZEGERID OTC [Suspect]
     Active Substance: OMEPRAZOLE\SODIUM BICARBONATE
     Indication: ABDOMINAL DISCOMFORT
     Dosage: 20 MG
     Route: 065
     Dates: start: 1990
  26. PEPCID [Concomitant]
     Active Substance: FAMOTIDINE
  27. INSULIN ASPART [Concomitant]
     Active Substance: INSULIN ASPART
  28. CARVEDILOL. [Concomitant]
     Active Substance: CARVEDILOL
  29. FUROSEMIDE. [Concomitant]
     Active Substance: FUROSEMIDE
     Indication: FLUID RETENTION
  30. PLAVIS [Concomitant]
     Indication: ANTICOAGULANT THERAPY
     Dates: start: 2000
  31. ZANTAC [Concomitant]
     Active Substance: RANITIDINE HYDROCHLORIDE
  32. DEXILANT [Suspect]
     Active Substance: DEXLANSOPRAZOLE
     Dosage: GENERIC
     Route: 065
  33. PREVACID 24 HR [Suspect]
     Active Substance: LANSOPRAZOLE
     Route: 065
  34. ROLAIDS [Concomitant]
     Active Substance: CALCIUM CARBONATE\MAGNESIUM HYDROXIDE

REACTIONS (5)
  - Renal injury [Unknown]
  - Chronic kidney disease [Not Recovered/Not Resolved]
  - Renal failure [Unknown]
  - Death [Fatal]
  - Rebound acid hypersecretion [Unknown]

NARRATIVE: CASE EVENT DATE: 20130208
